FAERS Safety Report 8319709-2 (Version None)
Quarter: 2012Q2

REPORT INFORMATION
  Report Type: 
  Country: None (occurrence: None)
  Receive Date: 20120427
  Receipt Date: 20120417
  Transmission Date: 20120825
  Serious: Yes (Hospitalization, Other)
  Sender: FDA-Public Use
  Company Number: US-ELI_LILLY_AND_COMPANY-US201204005638

PATIENT
  Sex: Male
  Weight: 112.2 kg

DRUGS (13)
  1. FUROSEMIDE [Concomitant]
     Dosage: 80 MG, EACH MORNING
     Route: 048
  2. NOVOLOG [Concomitant]
     Indication: INSULIN-REQUIRING TYPE 2 DIABETES MELLITUS
     Dosage: 50 U, TID
     Route: 058
  3. FENOFIBRATE [Concomitant]
     Dosage: 200 MG, EACH MORNING
     Route: 048
  4. LISINOPRIL                              /USA/ [Concomitant]
     Dosage: 40 MG, EACH EVENING
     Route: 048
  5. CLONIDINE [Concomitant]
     Dosage: 0.7 MG, TID
     Route: 048
  6. METOPROLOL TARTRATE [Concomitant]
     Dosage: 25 MG, BID
     Route: 048
  7. AMLODIPINE [Concomitant]
     Dosage: 10 MG, EACH MORNING
     Route: 048
  8. TAMSULOSIN HCL [Concomitant]
     Dosage: 0.4 MG, EACH EVENING
     Route: 048
  9. BYDUREON [Suspect]
     Indication: INSULIN-REQUIRING TYPE 2 DIABETES MELLITUS
     Dosage: 2 MG, WEEKLY (1/W)
     Route: 058
  10. ASPIRIN                                 /USA/ [Concomitant]
     Dosage: 325 MG, EACH MORNING
     Route: 048
  11. BYETTA [Suspect]
     Indication: INSULIN-REQUIRING TYPE 2 DIABETES MELLITUS
     Dosage: 5 UG, BID
     Route: 058
  12. BYETTA [Suspect]
     Dosage: 10 UG, BID
     Route: 058
  13. CRESTOR [Concomitant]
     Dosage: 10 MG, EACH EVENING
     Route: 048

REACTIONS (4)
  - OFF LABEL USE [None]
  - ADVERSE DRUG REACTION [None]
  - GENERAL PHYSICAL HEALTH DETERIORATION [None]
  - ARRHYTHMIA [None]
